FAERS Safety Report 24857406 (Version 1)
Quarter: 2025Q1

REPORT INFORMATION
  Report Type: Report from Study
  Country: US (occurrence: US)
  Receive Date: 20250117
  Receipt Date: 20250117
  Transmission Date: 20250409
  Serious: Yes (Hospitalization, Other)
  Sender: ABBVIE
  Company Number: US-ABBVIE-6084066

PATIENT
  Age: 72 Year
  Sex: Male

DRUGS (1)
  1. SKYRIZI [Suspect]
     Active Substance: RISANKIZUMAB-RZAA
     Indication: Psoriasis
     Dosage: STRENGTH: 150MG/ML
     Route: 058

REACTIONS (7)
  - Medical device implantation [Unknown]
  - Fall [Unknown]
  - Head injury [Unknown]
  - Eye injury [Unknown]
  - Ligament sprain [Unknown]
  - Dizziness [Unknown]
  - Device fastener issue [Unknown]

NARRATIVE: CASE EVENT DATE: 20210101
